FAERS Safety Report 8337278-8 (Version None)
Quarter: 2012Q2

REPORT INFORMATION
  Report Type: 
  Country: None (occurrence: None)
  Receive Date: 20120504
  Receipt Date: 20120501
  Transmission Date: 20120825
  Serious: Yes (Hospitalization)
  Sender: FDA-Public Use
  Company Number: JP-BRACCO-005836

PATIENT
  Sex: Female

DRUGS (2)
  1. IOPAMIDOL [Suspect]
     Indication: RECTAL CANCER
     Dosage: 1 ML/SEC FOR 1 MIN AND 20 SEC
     Route: 042
     Dates: start: 20120319, end: 20120319
  2. IOPAMIDOL [Suspect]
     Indication: COMPUTERISED TOMOGRAM
     Dosage: 1 ML/SEC FOR 1 MIN AND 20 SEC
     Route: 042
     Dates: start: 20120319, end: 20120319

REACTIONS (1)
  - SHOCK [None]
